FAERS Safety Report 4365240-9 (Version None)
Quarter: 2004Q2

REPORT INFORMATION
  Report Type: 
  Country: None (occurrence: None)
  Receive Date: 20040525
  Receipt Date: 20040414
  Transmission Date: 20050107
  Serious: No
  Sender: FDA-Public Use
  Company Number: PHEH2004US04248

PATIENT
  Age: 71 Year
  Sex: Female

DRUGS (6)
  1. ZELNORM [Suspect]
     Indication: IRRITABLE BOWEL SYNDROME
     Dosage: 6 MG, QD, ORAL
     Route: 048
     Dates: start: 20040301
  2. EFFEXOR [Concomitant]
  3. ROCALTROL [Concomitant]
  4. EVISTA [Concomitant]
  5. CALMS FORTE [Concomitant]
  6. MELATONIN (MELATONIN) [Concomitant]

REACTIONS (2)
  - CONDITION AGGRAVATED [None]
  - INSOMNIA [None]
